FAERS Safety Report 18496504 (Version 1)
Quarter: 2020Q4

REPORT INFORMATION
  Report Type: Spontaneous
  Country: US (occurrence: US)
  Receive Date: 20201112
  Receipt Date: 20201112
  Transmission Date: 20210114
  Serious: Yes (Hospitalization, Other)
  Sender: FDA-Public Use
  Company Number: US-PACIRA-202000499

PATIENT

DRUGS (1)
  1. EXPAREL [Suspect]
     Active Substance: BUPIVACAINE
     Indication: POSTOPERATIVE ANALGESIA
     Dosage: 266 MG TOTAL DOSE
     Route: 065

REACTIONS (8)
  - Hospitalisation [Unknown]
  - Oxygen therapy [Unknown]
  - Lung disorder [Unknown]
  - Endotracheal intubation complication [Unknown]
  - Pneumonia [Unknown]
  - Atelectasis [Unknown]
  - Acute respiratory distress syndrome [Unknown]
  - Off label use [Unknown]
